FAERS Safety Report 11869591 (Version 2)
Quarter: 2020Q3

REPORT INFORMATION
  Report Type: Report from Study
  Country: BR (occurrence: BR)
  Receive Date: 20151228
  Receipt Date: 20160114
  Transmission Date: 20201104
  Serious: Yes (Death, Life-Threatening, Hospitalization, Other)
  Sender: FDA-Public Use
  Company Number: BR-ROCHE-1553567

PATIENT
  Sex: Male

DRUGS (3)
  1. ALECTINIB. [Suspect]
     Active Substance: ALECTINIB
     Route: 065
     Dates: start: 20150212
  2. ALECTINIB. [Suspect]
     Active Substance: ALECTINIB
     Indication: LUNG ADENOCARCINOMA
     Route: 065
     Dates: end: 20150304
  3. ALECTINIB. [Suspect]
     Active Substance: ALECTINIB
     Route: 065
     Dates: start: 201501

REACTIONS (8)
  - Sepsis [Fatal]
  - Seizure [Recovered/Resolved]
  - Hypomagnesaemia [Recovered/Resolved]
  - Pneumonia [Fatal]
  - Atrial fibrillation [Recovered/Resolved]
  - Hypophosphataemia [Recovered/Resolved]
  - Respiratory failure [Unknown]
  - Respiratory disorder [Fatal]

NARRATIVE: CASE EVENT DATE: 20150201
